FAERS Safety Report 7297209-9 (Version None)
Quarter: 2011Q1

REPORT INFORMATION
  Report Type: 
  Country: None (occurrence: None)
  Receive Date: 20110216
  Receipt Date: 20110215
  Transmission Date: 20110831
  Serious: Yes (Hospitalization)
  Sender: FDA-Public Use
  Company Number: US-PFIZER INC-2010087310

PATIENT
  Sex: Male
  Weight: 61.7 kg

DRUGS (16)
  1. SUNITINIB MALATE [Suspect]
     Indication: MALIGNANT NEOPLASM OF ISLETS OF LANGERHANS
     Dosage: 25 MG, 4/2 SCHEDULE
     Route: 048
     Dates: start: 20050317
  2. CLONIDINE [Concomitant]
     Indication: HYPERTENSION
     Dosage: UNK
     Dates: start: 20090201
  3. GLYBURIDE [Concomitant]
     Indication: DIABETES MELLITUS
     Dosage: UNK
     Dates: start: 20030301
  4. MEGACE [Concomitant]
     Indication: DECREASED APPETITE
     Dosage: UNK
     Dates: start: 20090521
  5. ALTACE [Concomitant]
     Indication: HYPERTENSION
     Dosage: UNK
  6. REGLAN [Concomitant]
     Indication: NAUSEA
     Dosage: UNK
     Dates: start: 20030701
  7. SANDOSTATIN [Concomitant]
     Indication: DIARRHOEA
     Dosage: UNK
     Dates: start: 20070524
  8. FELODIPINE [Concomitant]
     Indication: HYPERTENSION
     Dosage: UNK
     Dates: start: 20060907
  9. LEVOTHYROXINE [Concomitant]
     Indication: HYPOTHYROIDISM
     Dosage: UNK
     Dates: start: 20061019
  10. LOMOTIL [Concomitant]
     Indication: DIARRHOEA
     Dosage: UNK
     Dates: start: 20040715
  11. ALLOPURINOL [Concomitant]
     Indication: GOUT
     Dosage: UNK
     Dates: start: 20071101
  12. PROCRIT [Concomitant]
     Indication: ANAEMIA
     Dosage: UNK
     Dates: start: 20090313
  13. GLIPIZIDE [Concomitant]
     Indication: DIABETES MELLITUS
     Dosage: UNK
  14. PROTONIX [Concomitant]
     Indication: DYSPEPSIA
     Dosage: UNK
     Dates: start: 20050901
  15. LASIX [Concomitant]
     Indication: OEDEMA
     Dosage: UNK
     Dates: start: 20080508
  16. LOVASTATIN [Concomitant]
     Indication: HYPERCHOLESTEROLAEMIA
     Dosage: UNK
     Dates: start: 20061019

REACTIONS (3)
  - BLOOD CREATININE INCREASED [None]
  - HYPOMAGNESAEMIA [None]
  - RENAL FAILURE ACUTE [None]
